FAERS Safety Report 6120529-8 (Version None)
Quarter: 2009Q1

REPORT INFORMATION
  Report Type: 
  Country: None (occurrence: None)
  Receive Date: 20090317
  Receipt Date: 20090309
  Transmission Date: 20090719
  Serious: Yes (Other)
  Sender: FDA-Public Use
  Company Number: US-JNJFOC-20090302357

PATIENT
  Sex: Female

DRUGS (1)
  1. ELMIRON [Suspect]
     Indication: CYSTITIS INTERSTITIAL
     Route: 048

REACTIONS (3)
  - AUTOIMMUNE THYROIDITIS [None]
  - FIBROMYALGIA [None]
  - IRRITABLE BOWEL SYNDROME [None]
